FAERS Safety Report 14900140 (Version 1)
Quarter: 2018Q2

REPORT INFORMATION
  Report Type: Spontaneous
  Country: NL (occurrence: NL)
  Receive Date: 20180516
  Receipt Date: 20180516
  Transmission Date: 20180711
  Serious: Yes (Hospitalization)
  Sender: FDA-Public Use
  Company Number: NL-TEVA-2018-NL-892173

PATIENT
  Age: 75 Year
  Sex: Female
  Weight: 89 kg

DRUGS (9)
  1. STRUMAZOL TABLET 10MG [Concomitant]
     Dosage: 10 MILLIGRAM DAILY;
     Route: 065
  2. ACENOCOUMAROL TABLET 1MG [Interacting]
     Active Substance: ACENOCOUMAROL
     Indication: PRODUCT USED FOR UNKNOWN INDICATION
     Route: 065
  3. PARACETAMOL TABLET  500MG [Concomitant]
     Active Substance: ACETAMINOPHEN
     Dosage: 4DD2
     Route: 065
  4. CIPROFLOXACIN. [Suspect]
     Active Substance: CIPROFLOXACIN
     Indication: CYSTITIS
     Dosage: 500 MILLIGRAM DAILY;
     Route: 065
     Dates: start: 20180221
  5. LOSARTAN KALIUM PCH TABLET OMHULD  50MG [Concomitant]
     Dosage: 50 MILLIGRAM DAILY;
     Route: 065
  6. METOPROLOLTARTRAAT TEVA TABLET  50MG [Concomitant]
     Dosage: 50 MILLIGRAM DAILY;
     Route: 065
  7. HYDROCHLOORTHIAZIDE TEVA TABLET 12,5MG [Concomitant]
     Dosage: 12.5 MILLIGRAM DAILY;
     Route: 065
  8. METFORMINE 500MG TABL [Concomitant]
     Dosage: 500 MILLIGRAM DAILY;
     Route: 065
  9. SIMVASTATINE TABLET FO 20MG [Concomitant]
     Dosage: 20 MILLIGRAM DAILY;
     Route: 065

REACTIONS (3)
  - Haematuria [Recovering/Resolving]
  - Drug interaction [Recovering/Resolving]
  - International normalised ratio increased [Recovering/Resolving]

NARRATIVE: CASE EVENT DATE: 20180221
